FAERS Safety Report 4601947-3 (Version None)
Quarter: 2005Q1

REPORT INFORMATION
  Report Type: 
  Country: None (occurrence: None)
  Receive Date: 20050215
  Receipt Date: 20041209
  Transmission Date: 20050727
  Serious: Yes (Hospitalization)
  Sender: FDA-Public Use
  Company Number: 389033

PATIENT
  Age: 56 Year
  Sex: Female
  Weight: 59 kg

DRUGS (5)
  1. PEGASYS [Suspect]
     Indication: HEPATITIS C
     Dosage: 1 ML 1 PER WEEK SUBCUTANEOUS
     Route: 058
     Dates: start: 20040719, end: 20041122
  2. COPEGUS [Suspect]
     Indication: HEPATITIS C
     Dosage: 1000 MG DAILY ORAL
     Route: 048
     Dates: start: 20040719, end: 20041122
  3. ENALAPRIL MALEATE [Concomitant]
  4. LEXAPRO [Concomitant]
  5. VITAMIN B COMPLEX (VITAMIN B COMPLEX) [Concomitant]

REACTIONS (4)
  - ANAEMIA [None]
  - ASTHENIA [None]
  - DIZZINESS [None]
  - FATIGUE [None]
